FAERS Safety Report 9589615 (Version 1)
Quarter: 2013Q4

REPORT INFORMATION
  Report Type: Spontaneous
  Country: US (occurrence: US)
  Receive Date: 20131003
  Receipt Date: 20131003
  Transmission Date: 20140711
  Serious: No
  Sender: FDA-Public Use
  Company Number: US-AMGEN-USASP2012070946

PATIENT
  Age: 59 Year
  Sex: Female
  Weight: 88.44 kg

DRUGS (13)
  1. ENBREL [Suspect]
     Indication: PRODUCT USED FOR UNKNOWN INDICATION
     Dosage: 50 MG, QWK
     Route: 058
  2. INDERAL [Concomitant]
     Dosage: 10 MG, UNK
  3. WELLBUTRIN [Concomitant]
     Dosage: 150 MG, UNK
  4. TRAZODONE [Concomitant]
     Dosage: 100 MG, UNK
  5. ZOLOFT [Concomitant]
     Dosage: UNK
  6. ENJUVIA [Concomitant]
     Dosage: 0.45 MG, UNK
  7. SULINDAC [Concomitant]
     Dosage: 150 MG, UNK
  8. LISINOPRIL [Concomitant]
     Dosage: 5 MG, UNK
  9. IMITREX                            /01044801/ [Concomitant]
     Dosage: 4 MG/0.5
  10. SINU AID [Concomitant]
     Dosage: MAX-ST
  11. PROCHLORPERAZ [Suspect]
     Dosage: 5 MG, UNK
  12. EXCEDRIN                           /00110301/ [Concomitant]
     Dosage: UNK
  13. HYDROCHLOROTHIAZIDE WITH TRIAMTERENE [Concomitant]
     Dosage: 25-37.5

REACTIONS (1)
  - Erythema [Unknown]
